FAERS Safety Report 21780679 (Version 1)
Quarter: 2022Q4

REPORT INFORMATION
  Report Type: Spontaneous
  Country: US (occurrence: US)
  Receive Date: 20221227
  Receipt Date: 20221227
  Transmission Date: 20230113
  Serious: Yes (Hospitalization, Other)
  Sender: FDA-Public Use
  Company Number: US-BRISTOL-MYERS SQUIBB COMPANY-2022-157544

PATIENT
  Age: 98 Year
  Sex: Male

DRUGS (3)
  1. ELIQUIS [Interacting]
     Active Substance: APIXABAN
     Indication: Product used for unknown indication
  2. XTANDI [Interacting]
     Active Substance: ENZALUTAMIDE
     Indication: Product used for unknown indication
  3. CRESTOR [Interacting]
     Active Substance: ROSUVASTATIN CALCIUM
     Indication: Product used for unknown indication

REACTIONS (2)
  - Cerebrovascular accident [Unknown]
  - Drug interaction [Unknown]

NARRATIVE: CASE EVENT DATE: 20221202
